FAERS Safety Report 24065307 (Version 1)
Quarter: 2024Q3

REPORT INFORMATION
  Report Type: Spontaneous
  Country: DE (occurrence: DE)
  Receive Date: 20240709
  Receipt Date: 20240709
  Transmission Date: 20241016
  Serious: Yes (Life-Threatening, Hospitalization, Disabling)
  Sender: SANDOZ
  Company Number: None

PATIENT
  Age: 62 Year
  Sex: Female
  Weight: 66 kg

DRUGS (8)
  1. HYRIMOZ [Suspect]
     Active Substance: ADALIMUMAB-ADAZ
     Indication: Polyarthritis
     Dosage: 1 DF (1 DF DOSAGE FORM EVERY 14 DAYS)
     Route: 058
     Dates: start: 201903
  2. ASPIRIN [Concomitant]
     Active Substance: ASPIRIN
     Indication: Peripheral arterial occlusive disease
     Dosage: 1 DF, QD
     Route: 048
  3. ATORVASTATIN [Concomitant]
     Active Substance: ATORVASTATIN
     Indication: Hypercholesterolaemia
     Dosage: 40 MG, QD
     Route: 048
  4. BISOPROLOL [Concomitant]
     Active Substance: BISOPROLOL\BISOPROLOL FUMARATE
     Indication: Hypertension
     Dosage: 0.5 DF, QD
     Route: 048
  5. CANDESARTAN [Concomitant]
     Active Substance: CANDESARTAN
     Indication: Hypertension
     Dosage: 16 MG, QD
     Route: 048
  6. ACETAZOLAMIDE [Concomitant]
     Active Substance: ACETAZOLAMIDE
     Indication: Glaucoma
     Dosage: 500 MG, QD
     Route: 048
  7. INDOMETHACIN [Concomitant]
     Active Substance: INDOMETHACIN
     Indication: Pain
     Dosage: 50 MG, PRN
     Route: 048
  8. METHOTREXATE SODIUM [Concomitant]
     Active Substance: METHOTREXATE SODIUM
     Indication: Polyarthritis
     Dosage: 1 DF, BIW (DAILY DOSE: 1 DF DOSAGE FORM EVERY 2 WEEKS)
     Route: 058

REACTIONS (1)
  - Hodgkin^s disease mixed cellularity stage unspecified [Recovering/Resolving]

NARRATIVE: CASE EVENT DATE: 20200609
